FAERS Safety Report 8336818 (Version 2)
Quarter: 2013Q3

REPORT INFORMATION
  Report Type: Spontaneous
  Country: PT (occurrence: None)
  Receive Date: 20120105
  Receipt Date: 20130919
  Transmission Date: 20140515
  Serious: Yes (Life-Threatening)
  Sender: FDA-Public Use
  Company Number: 1147810

PATIENT
  Age: 56 Year
  Sex: Male
  Weight: 98 kg

DRUGS (5)
  1. CARBOPLATIN [Suspect]
     Indication: NON-SMALL CELL LUNG CANCER
     Dosage: 35.714 MG, 750 MG EVERY 21 DAYS, INTRAVENOUS (NOT OTHERWISE SPECIFIED)
     Route: 042
     Dates: start: 20111012, end: 20111215
  2. IRINOTECAN [Concomitant]
  3. HYDROXYZINE [Concomitant]
  4. DEXAMETHASONE [Concomitant]
  5. ONDANSETRON [Concomitant]

REACTIONS (6)
  - Hyperhidrosis [None]
  - Vomiting [None]
  - Bronchospasm [None]
  - Pruritus [None]
  - Erythema [None]
  - Tachycardia [None]
